FAERS Safety Report 8195258-X (Version None)
Quarter: 2012Q1

REPORT INFORMATION
  Report Type: 
  Country: None (occurrence: None)
  Receive Date: 20120308
  Receipt Date: 20120103
  Transmission Date: 20120608
  Serious: No
  Sender: FDA-Public Use
  Company Number: US-GLAXOSMITHKLINE-A0959881A

PATIENT
  Sex: Male

DRUGS (2)
  1. BLOOD THINNER [Concomitant]
  2. NICORETTE [Suspect]
     Indication: SMOKING CESSATION THERAPY
     Route: 002
     Dates: start: 20110801

REACTIONS (2)
  - LACERATION [None]
  - PRODUCT QUALITY ISSUE [None]
